FAERS Safety Report 12075284 (Version 2)
Quarter: 2016Q2

REPORT INFORMATION
  Report Type: Report from Study
  Country: PL (occurrence: PL)
  Receive Date: 20160212
  Receipt Date: 20160516
  Transmission Date: 20160815
  Serious: Yes (Hospitalization)
  Sender: FDA-Public Use
  Company Number: PL-ASTRAZENECA-2016SE13321

PATIENT
  Age: 22264 Day
  Sex: Female

DRUGS (12)
  1. CLEXAN [Concomitant]
     Indication: DEEP VEIN THROMBOSIS
     Route: 058
  2. VANDETANIB. [Suspect]
     Active Substance: VANDETANIB
     Indication: PAPILLARY THYROID CANCER
     Route: 048
     Dates: start: 20150114
  3. FOLIC ACID. [Concomitant]
     Active Substance: FOLIC ACID
     Indication: LEUKOPENIA
     Route: 048
  4. VIT B COMPLEX [Concomitant]
     Indication: LEUKOPENIA
     Route: 048
  5. EUTHYROX [Concomitant]
     Active Substance: LEVOTHYROXINE SODIUM
     Indication: HYPOTHYROIDISM
     Route: 048
     Dates: end: 20150204
  6. HYALURONIC ACID [Concomitant]
     Active Substance: HYALURONIC ACID
     Indication: ULCERATIVE KERATITIS
     Route: 047
     Dates: start: 20150120
  7. EUTHYROX [Concomitant]
     Active Substance: LEVOTHYROXINE SODIUM
     Indication: HYPOTHYROIDISM
     Route: 048
     Dates: start: 20150619
  8. CALCICOL [Concomitant]
     Active Substance: CALCIUM GLUCONATE
     Indication: ULCERATIVE KERATITIS
     Route: 047
     Dates: start: 20150408
  9. VANDETANIB. [Suspect]
     Active Substance: VANDETANIB
     Indication: PAPILLARY THYROID CANCER
     Route: 048
     Dates: start: 20141209, end: 20141221
  10. AMLODIPINE [Concomitant]
     Active Substance: AMLODIPINE BESYLATE
     Indication: HYPERTENSION
     Route: 048
     Dates: start: 20150310
  11. VITAMIN B6 [Concomitant]
     Active Substance: PYRIDOXINE HYDROCHLORIDE
     Indication: LEUKOPENIA
     Route: 048
  12. EUTHYROX [Concomitant]
     Active Substance: LEVOTHYROXINE SODIUM
     Indication: HYPOTHYROIDISM
     Route: 048
     Dates: start: 20150323, end: 20150618

REACTIONS (1)
  - Non-cardiac chest pain [Recovering/Resolving]

NARRATIVE: CASE EVENT DATE: 20160203
